FAERS Safety Report 12161647 (Version 2)
Quarter: 2016Q2

REPORT INFORMATION
  Report Type: Spontaneous
  Country: US (occurrence: US)
  Receive Date: 20160309
  Receipt Date: 20160422
  Transmission Date: 20160815
  Serious: Yes (Hospitalization, Other)
  Sender: FDA-Public Use
  Company Number: US-BEH-2016059439

PATIENT
  Sex: Male
  Weight: 90 kg

DRUGS (26)
  1. ZEMAIRA [Suspect]
     Active Substance: .ALPHA.1-PROTEINASE INHIBITOR HUMAN
     Route: 042
     Dates: start: 20080214
  2. XANAX [Concomitant]
     Active Substance: ALPRAZOLAM
  3. CHLORTHALIDONE. [Concomitant]
     Active Substance: CHLORTHALIDONE
  4. ALBUTEROL. [Concomitant]
     Active Substance: ALBUTEROL
  5. NEXIUM [Concomitant]
     Active Substance: ESOMEPRAZOLE MAGNESIUM
  6. AMOXICILLIN. [Concomitant]
     Active Substance: AMOXICILLIN
  7. WELLBUTRIN [Concomitant]
     Active Substance: BUPROPION HYDROCHLORIDE
  8. DIOVAN [Concomitant]
     Active Substance: VALSARTAN
  9. SPIRIVA [Concomitant]
     Active Substance: TIOTROPIUM BROMIDE MONOHYDRATE
  10. EPIPEN [Concomitant]
     Active Substance: EPINEPHRINE
  11. PREDNISONE. [Concomitant]
     Active Substance: PREDNISONE
  12. COMBIVENT [Concomitant]
     Active Substance: ALBUTEROL SULFATE\IPRATROPIUM BROMIDE
  13. PROMETHAZINE [Concomitant]
     Active Substance: PROMETHAZINE\PROMETHAZINE HYDROCHLORIDE
  14. DIPHENHYDRAMINE. [Concomitant]
     Active Substance: DIPHENHYDRAMINE
  15. LMX [Concomitant]
     Active Substance: LIDOCAINE
  16. NITROGLYCERIN. [Concomitant]
     Active Substance: NITROGLYCERIN
  17. AMBIEN [Concomitant]
     Active Substance: ZOLPIDEM TARTRATE
  18. HYDROCHLOROTHIAZIDE. [Concomitant]
     Active Substance: HYDROCHLOROTHIAZIDE
  19. ASPIRIN. [Concomitant]
     Active Substance: ASPIRIN
  20. ZEMAIRA [Suspect]
     Active Substance: .ALPHA.1-PROTEINASE INHIBITOR HUMAN
     Indication: ALPHA-1 ANTI-TRYPSIN DEFICIENCY
     Route: 042
     Dates: start: 20080724
  21. THEOPHYLLINE [Concomitant]
     Active Substance: THEOPHYLLINE ANHYDROUS
  22. SYMBICORT [Concomitant]
     Active Substance: BUDESONIDE\FORMOTEROL FUMARATE DIHYDRATE
  23. HEPARIN [Concomitant]
     Active Substance: HEPARIN SODIUM
  24. SODIUM CHLORIDE. [Concomitant]
     Active Substance: SODIUM CHLORIDE
  25. FLONASE [Concomitant]
     Active Substance: FLUTICASONE PROPIONATE
  26. IBUPROFEN. [Concomitant]
     Active Substance: IBUPROFEN

REACTIONS (2)
  - Pulmonary mass [Unknown]
  - Pneumothorax [Unknown]
